FAERS Safety Report 17428167 (Version 1)
Quarter: 2020Q1

REPORT INFORMATION
  Report Type: Spontaneous
  Country: FR (occurrence: FR)
  Receive Date: 20200217
  Receipt Date: 20200217
  Transmission Date: 20200409
  Serious: Yes (Life-Threatening)
  Sender: FDA-Public Use
  Company Number: FR-TEVA-2020-FR-1187181

PATIENT
  Age: 66 Year
  Sex: Female
  Weight: 89 kg

DRUGS (11)
  1. AMLODIPINE [Suspect]
     Active Substance: AMLODIPINE BESYLATE
     Indication: HYPERTENSION
     Dosage: 1 DOSAGE FORMS 1 DAYS
     Route: 048
     Dates: end: 20200109
  2. OXYNORMORO [Concomitant]
     Active Substance: OXYCODONE HYDROCHLORIDE
  3. BISOPROLOL (HEMIFUMARATE DE) [Suspect]
     Active Substance: BISOPROLOL FUMARATE
     Indication: HYPERTENSION
     Dosage: 5 MG 1 DAYS
     Route: 048
     Dates: end: 20200109
  4. CLOMIPRAMINE (CHLORHYDRATE DE) [Concomitant]
     Active Substance: CLOMIPRAMINE HYDROCHLORIDE
  5. PLAVIX [Concomitant]
     Active Substance: CLOPIDOGREL BISULFATE
  6. JANUMET [Suspect]
     Active Substance: METFORMIN HYDROCHLORIDE\SITAGLIPTIN PHOSPHATE
     Indication: DIABETES MELLITUS
     Dosage: 2 DOSAGE FORMS 1 DAYS
     Route: 048
     Dates: end: 20200109
  7. STAGID 700 MG, COMPRIM? S?CABLE [Suspect]
     Active Substance: METFORMIN PAMOATE
     Indication: DIABETES MELLITUS
     Dosage: 1 DOSAGE FORMS 1 DAYS
     Route: 048
     Dates: end: 20200109
  8. ATORVASTATINE [Concomitant]
     Active Substance: ATORVASTATIN
  9. PERINDOPRIL [Suspect]
     Active Substance: PERINDOPRIL
     Indication: HYPERTENSION
     Dosage: 10 MG 1 DAYS
     Route: 048
     Dates: end: 20200109
  10. QUETIAPINE. [Concomitant]
     Active Substance: QUETIAPINE
  11. SERESTA [Concomitant]
     Active Substance: OXAZEPAM

REACTIONS (5)
  - Lactic acidosis [Recovered/Resolved]
  - Hypotension [Recovered/Resolved]
  - Acute kidney injury [Recovering/Resolving]
  - Bradycardia [Recovered/Resolved]
  - Hyperkalaemia [Recovered/Resolved]

NARRATIVE: CASE EVENT DATE: 202001
